FAERS Safety Report 10356850 (Version 2)
Quarter: 2014Q3

REPORT INFORMATION
  Report Type: Report from Study
  Country: FR (occurrence: FR)
  Receive Date: 20140801
  Receipt Date: 20140801
  Transmission Date: 20150326
  Serious: Yes (Other)
  Sender: FDA-Public Use
  Company Number: FR-VERTEX PHARMACEUTICALS INC-AE-2011-000389

PATIENT
  Age: 56 Year
  Sex: Male
  Weight: 79 kg

DRUGS (4)
  1. TELAPREVIR [Suspect]
     Active Substance: TELAPREVIR
     Indication: HEPATITIS C
     Dosage: 750 MG
     Route: 048
     Dates: start: 20110420, end: 20110722
  2. COPEGUS [Suspect]
     Active Substance: RIBAVIRIN
     Indication: HEPATITIS C
     Dosage: DOSAGE FORM: UNSPECIFIED
     Route: 048
     Dates: start: 20110429
  3. COPEGUS [Suspect]
     Active Substance: RIBAVIRIN
     Dosage: DOSAGE FORM: UNSPECIFIED
     Route: 048
     Dates: start: 20120330
  4. PEGASYS [Suspect]
     Active Substance: PEGINTERFERON ALFA-2A
     Indication: HEPATITIS C
     Dosage: DOSAGE FORM: UNSPECIFIED
     Route: 058
     Dates: start: 20110429, end: 20120330

REACTIONS (2)
  - Anaemia [Recovering/Resolving]
  - Neutropenia [Unknown]

NARRATIVE: CASE EVENT DATE: 20110519
